FAERS Safety Report 10700608 (Version 1)
Quarter: 2014Q4

REPORT INFORMATION
  Report Type: Spontaneous
  Country: US (occurrence: None)
  Receive Date: 20141224
  Receipt Date: 20141224
  Transmission Date: 20150529
  Serious: Yes (Life-Threatening)
  Sender: FDA-Public Use
  Company Number: 1000060257

PATIENT
  Age: 36 Year
  Sex: Male
  Weight: 74.8 kg

DRUGS (1)
  1. TEFLARO [Suspect]
     Active Substance: CEFTAROLINE FOSAMIL
     Indication: ENDOCARDITIS STAPHYLOCOCCAL
     Route: 042
     Dates: start: 20130904, end: 20131026

REACTIONS (2)
  - Neutropenia [None]
  - Off label use [None]

NARRATIVE: CASE EVENT DATE: 20130904
